FAERS Safety Report 18631578 (Version 2)
Quarter: 2020Q4

REPORT INFORMATION
  Report Type: Spontaneous
  Country: AU (occurrence: AU)
  Receive Date: 20201218
  Receipt Date: 20201222
  Transmission Date: 20210114
  Serious: Yes (Other)
  Sender: FDA-Public Use
  Company Number: AU-JNJFOC-20201225138

PATIENT
  Sex: Female

DRUGS (9)
  1. REMICADE [Suspect]
     Active Substance: INFLIXIMAB
     Indication: COLITIS ULCERATIVE
     Route: 042
  2. AZATHIOPRINE. [Suspect]
     Active Substance: AZATHIOPRINE
  3. CORTIMENT [BUDESONIDE] [Concomitant]
     Active Substance: BUDESONIDE
  4. PREDNISOLONE. [Concomitant]
     Active Substance: PREDNISOLONE
  5. VEDOLIZUMAB [Concomitant]
     Active Substance: VEDOLIZUMAB
  6. PREDSOL [PREDNISOLONE SODIUM PHOSPHATE] [Concomitant]
  7. XELJANZ [Concomitant]
     Active Substance: TOFACITINIB CITRATE
  8. TIOGUANINE [Suspect]
     Active Substance: THIOGUANINE ANHYDROUS
  9. MESALAZINE [Suspect]
     Active Substance: MESALAMINE

REACTIONS (7)
  - Thrombocytopenia [Unknown]
  - Drug ineffective [Unknown]
  - Drug intolerance [Unknown]
  - Condition aggravated [Unknown]
  - Pancreatitis [Unknown]
  - Off label use [Unknown]
  - Immune thrombocytopenia [Unknown]
